FAERS Safety Report 4393625-3 (Version None)
Quarter: 2004Q3

REPORT INFORMATION
  Report Type: 
  Country: None (occurrence: None)
  Receive Date: 20040709
  Receipt Date: 20040629
  Transmission Date: 20050211
  Serious: Yes (Other)
  Sender: FDA-Public Use
  Company Number: 200412238JP

PATIENT
  Age: 74 Year
  Sex: Male

DRUGS (3)
  1. KETEK [Suspect]
     Indication: LARYNGOPHARYNGITIS
     Route: 048
     Dates: start: 20040619, end: 20040620
  2. DAZEN [Concomitant]
     Dosage: DOSE: UNK
     Route: 048
  3. INSULIN [Concomitant]
     Indication: DIABETES MELLITUS
     Dosage: DOSE: UNK
     Route: 058

REACTIONS (5)
  - APHAGIA [None]
  - BLISTER [None]
  - PYREXIA [None]
  - RASH ERYTHEMATOUS [None]
  - STOMATITIS [None]
